FAERS Safety Report 22309103 (Version 1)
Quarter: 2023Q2

REPORT INFORMATION
  Report Type: Spontaneous
  Country: US (occurrence: None)
  Receive Date: 20230511
  Receipt Date: 20230511
  Transmission Date: 20230721
  Serious: No
  Sender: FDA-Public Use
  Company Number: US-ROCHE-3313467

PATIENT
  Age: 55 Year
  Sex: Male

DRUGS (2)
  1. OCREVUS [Suspect]
     Active Substance: OCRELIZUMAB
     Indication: Primary progressive multiple sclerosis
     Dosage: ONGOING: YES
     Route: 042
     Dates: start: 201801
  2. AMPYRA [Concomitant]
     Active Substance: DALFAMPRIDINE
     Route: 048

REACTIONS (1)
  - Fatigue [Not Recovered/Not Resolved]
